FAERS Safety Report 17086068 (Version 1)
Quarter: 2019Q4

REPORT INFORMATION
  Report Type: Spontaneous
  Country: US (occurrence: US)
  Receive Date: 20191031
  Receipt Date: 20191031
  Transmission Date: 20200122
  Serious: No
  Sender: FDA-Public Use
  Company Number: None

PATIENT
  Age: 33 Year
  Sex: Female

DRUGS (1)
  1. NORDITROPIN [Suspect]
     Active Substance: SOMATROPIN
     Indication: HYPOPITUITARISM
     Route: 058
     Dates: start: 201907

REACTIONS (4)
  - Injection site pruritus [None]
  - Injection site erythema [None]
  - Injection site swelling [None]
  - Allergy to metals [None]

NARRATIVE: CASE EVENT DATE: 201910
